FAERS Safety Report 12252553 (Version 1)
Quarter: 2016Q2

REPORT INFORMATION
  Report Type: Spontaneous
  Country: DE (occurrence: DE)
  Receive Date: 20160411
  Receipt Date: 20160411
  Transmission Date: 20160815
  Serious: Yes (Other)
  Sender: FDA-Public Use
  Company Number: PHHY2016DE047230

PATIENT
  Sex: Female

DRUGS (1)
  1. EXFORGE [Suspect]
     Active Substance: AMLODIPINE BESYLATE\VALSARTAN
     Indication: HYPERTENSION
     Dosage: UNK, 5 MG AMLODIPINE, 160 MG VALSARTAN
     Route: 065

REACTIONS (4)
  - Abasia [Unknown]
  - Balance disorder [Unknown]
  - Tremor [Recovered/Resolved]
  - Dysgraphia [Unknown]
